FAERS Safety Report 4742220-2 (Version None)
Quarter: 2005Q3

REPORT INFORMATION
  Report Type: 
  Country: None (occurrence: None)
  Receive Date: 20050811
  Receipt Date: 20050323
  Transmission Date: 20060218
  Serious: No
  Sender: FDA-Public Use
  Company Number: US-GLAXOSMITHKLINE-A0551028A

PATIENT
  Age: 28 Year
  Sex: Female

DRUGS (2)
  1. PAXIL CR [Suspect]
     Dosage: 25MG PER DAY
     Route: 048
  2. ALEVE [Concomitant]
     Dosage: 200MG UNKNOWN
     Route: 065

REACTIONS (2)
  - FEELING HOT [None]
  - TREMOR [None]
